FAERS Safety Report 9538313 (Version 2)
Quarter: 2013Q4

REPORT INFORMATION
  Report Type: Spontaneous
  Country: DE (occurrence: DE)
  Receive Date: 20130920
  Receipt Date: 20131115
  Transmission Date: 20140711
  Serious: Yes (Hospitalization)
  Sender: FDA-Public Use
  Company Number: DE-ASTRAZENECA-2013SE69822

PATIENT
  Age: 65 Year
  Sex: Male

DRUGS (1)
  1. BRILIQUE [Suspect]
     Dosage: LOADING DOSE
     Route: 048

REACTIONS (4)
  - Device occlusion [Recovered/Resolved]
  - Coma [Recovered/Resolved]
  - Confusional state [Recovered/Resolved]
  - Memory impairment [Not Recovered/Not Resolved]
